FAERS Safety Report 11720012 (Version 1)
Quarter: 2015Q4

REPORT INFORMATION
  Report Type: Spontaneous
  Country: US (occurrence: US)
  Receive Date: 20151110
  Receipt Date: 20151110
  Transmission Date: 20160304
  Serious: No
  Sender: FDA-Public Use
  Company Number: US-PERRIGO-15US004952

PATIENT
  Age: 40 Year
  Sex: Male
  Weight: 99.77 kg

DRUGS (2)
  1. CIMETIDINE  200 MG 022 [Suspect]
     Active Substance: CIMETIDINE
     Dosage: 600 MG, SINGLE
     Route: 048
     Dates: start: 20150511, end: 20150511
  2. CIMETIDINE  200 MG 022 [Suspect]
     Active Substance: CIMETIDINE
     Indication: URTICARIA
     Dosage: 600 MG TO 800 MG, QD, PRN
     Route: 048
     Dates: start: 2012, end: 201411

REACTIONS (5)
  - Feeling abnormal [Unknown]
  - Diarrhoea [Unknown]
  - Retching [Unknown]
  - Vomiting [Unknown]
  - Off label use [Recovered/Resolved]

NARRATIVE: CASE EVENT DATE: 2012
